FAERS Safety Report 6668268-9 (Version None)
Quarter: 2010Q2

REPORT INFORMATION
  Report Type: 
  Country: None (occurrence: None)
  Receive Date: 20100405
  Receipt Date: 20100405
  Transmission Date: 20101027
  Serious: No
  Sender: FDA-Public Use
  Company Number: None

PATIENT

DRUGS (1)
  1. LYRICA [Suspect]
     Indication: FIBROMYALGIA

REACTIONS (2)
  - AMNESIA [None]
  - WITHDRAWAL SYNDROME [None]
